FAERS Safety Report 9922801 (Version 1)
Quarter: 2014Q1

REPORT INFORMATION
  Report Type: Spontaneous
  Country: GB (occurrence: GB)
  Receive Date: 20140225
  Receipt Date: 20140225
  Transmission Date: 20141002
  Serious: Yes (Other)
  Sender: FDA-Public Use
  Company Number: GB-ACTAVISPR-2013-24829

PATIENT
  Sex: Male

DRUGS (2)
  1. TRAMADOL [Suspect]
     Indication: ANALGESIC THERAPY
     Dosage: 50 MG, 3-4 TIMES A DAY
     Route: 048
  2. CYCLIZINE [Concomitant]
     Indication: PRODUCT USED FOR UNKNOWN INDICATION
     Route: 065

REACTIONS (1)
  - Cognitive disorder [Unknown]
